FAERS Safety Report 24114286 (Version 7)
Quarter: 2025Q4

REPORT INFORMATION
  Report Type: Report from Study
  Country: US (occurrence: US)
  Receive Date: 20240720
  Receipt Date: 20251211
  Transmission Date: 20260117
  Serious: Yes (Hospitalization, Other)
  Sender: TAKEDA
  Company Number: US-TAKEDA-2024TUS071327

PATIENT
  Age: 46 Year
  Sex: Female

DRUGS (3)
  1. ICATIBANT [Suspect]
     Active Substance: ICATIBANT ACETATE
     Indication: Immune system disorder
     Dosage: 30 MILLIGRAM
  2. ICATIBANT [Suspect]
     Active Substance: ICATIBANT ACETATE
     Dosage: UNK
  3. BERINERT [Suspect]
     Active Substance: HUMAN C1-ESTERASE INHIBITOR
     Indication: Product used for unknown indication
     Dosage: UNK

REACTIONS (14)
  - Impaired gastric emptying [Unknown]
  - Device malfunction [Unknown]
  - Thrombosis [Unknown]
  - Intestinal mass [Unknown]
  - Blood pressure increased [Unknown]
  - Syncope [Unknown]
  - Intestinal obstruction [Unknown]
  - Mast cell activation syndrome [Unknown]
  - Dizziness [Unknown]
  - Haematoma [Unknown]
  - Meniscus injury [Unknown]
  - Tendonitis [Unknown]
  - Product use issue [Unknown]
  - Catheter site cellulitis [Unknown]
